FAERS Safety Report 12720118 (Version 8)
Quarter: 2020Q1

REPORT INFORMATION
  Report Type: Spontaneous
  Country: US (occurrence: US)
  Receive Date: 20160907
  Receipt Date: 20200210
  Transmission Date: 20200409
  Serious: Yes (Other)
  Sender: FDA-Public Use
  Company Number: US-PFIZER INC-2016413273

PATIENT
  Age: 73 Year
  Sex: Female

DRUGS (1)
  1. XELJANZ XR [Suspect]
     Active Substance: TOFACITINIB CITRATE
     Indication: RHEUMATOID ARTHRITIS
     Dosage: 11 MG, UNK
     Route: 048

REACTIONS (12)
  - Back injury [Unknown]
  - Cystitis [Unknown]
  - Anxiety [Unknown]
  - Limb injury [Unknown]
  - Mobility decreased [Unknown]
  - Fall [Unknown]
  - Weight decreased [Unknown]
  - Kidney infection [Unknown]
  - Malaise [Unknown]
  - Pain [Unknown]
  - Balance disorder [Unknown]
  - Pain in extremity [Unknown]
